FAERS Safety Report 4473417-7 (Version None)
Quarter: 2004Q3

REPORT INFORMATION
  Report Type: 
  Country: None (occurrence: None)
  Receive Date: 20040909
  Receipt Date: 20040510
  Transmission Date: 20050211
  Serious: Yes (Hospitalization)
  Sender: FDA-Public Use
  Company Number: A03200401483

PATIENT
  Age: 59 Year
  Sex: Female
  Weight: 91.6266 kg

DRUGS (4)
  1. ELOXATIN [Suspect]
     Indication: COLORECTAL CANCER
     Dosage: 85 MG/M2 Q2W - INTRAVENOUS NOS
     Route: 042
     Dates: start: 20040420, end: 20040420
  2. FLUOROURACIL [Concomitant]
     Indication: METASTASES TO LIVER
  3. LEUCOVORIN CALCIUM [Concomitant]
  4. DOLASETRON [Concomitant]

REACTIONS (4)
  - CHEST DISCOMFORT [None]
  - MUSCLE SPASMS [None]
  - PYREXIA [None]
  - TREMOR [None]
